FAERS Safety Report 5116130-5 (Version None)
Quarter: 2006Q3

REPORT INFORMATION
  Report Type: 
  Country: None (occurrence: None)
  Receive Date: 20060927
  Receipt Date: 20060601
  Transmission Date: 20061208
  Serious: No
  Sender: FDA-Public Use
  Company Number: US-BRISTOL-MYERS SQUIBB COMPANY-13401666

PATIENT
  Sex: Female

DRUGS (1)
  1. DEFINITY [Suspect]
     Route: 042
     Dates: start: 20060531, end: 20060531

REACTIONS (1)
  - URTICARIA [None]
